FAERS Safety Report 5119646-0 (Version None)
Quarter: 2006Q3

REPORT INFORMATION
  Report Type: 
  Country: None (occurrence: None)
  Receive Date: 20060929
  Receipt Date: 20060918
  Transmission Date: 20061208
  Serious: Yes (Other)
  Sender: FDA-Public Use
  Company Number: 2006112953

PATIENT
  Age: 42 Year
  Sex: Female
  Weight: 45.3597 kg

DRUGS (3)
  1. ANTIVERT [Suspect]
     Indication: DIZZINESS
     Dosage: (12.5 MG, 1 D)
     Dates: start: 20060911
  2. ANTIVERT [Suspect]
     Indication: HYPERSENSITIVITY
     Dosage: (12.5 MG, 1 D)
     Dates: start: 20060911
  3. ALL OTHER THERAPEUTIC PRODUCTS (ALL OTHER THERAPEUTIC PRODUCTS) [Concomitant]

REACTIONS (1)
  - DRUG HYPERSENSITIVITY [None]
